FAERS Safety Report 9252876 (Version 2)
Quarter: 2013Q2

REPORT INFORMATION
  Report Type: Report from Study
  Country: US (occurrence: US)
  Receive Date: 20130424
  Receipt Date: 20130523
  Transmission Date: 20140414
  Serious: Yes (Hospitalization)
  Sender: FDA-Public Use
  Company Number: US-PFIZER INC-2013116365

PATIENT
  Age: 78 Year
  Sex: Male
  Weight: 97.7 kg

DRUGS (21)
  1. TEMSIROLIMUS [Suspect]
     Indication: MANTLE CELL LYMPHOMA
     Dosage: 20 MG, CYCLIC (DAY 1,8,15,22)
     Route: 042
     Dates: start: 20120516
  2. BORTEZOMIB [Suspect]
     Indication: MANTLE CELL LYMPHOMA
     Dosage: 2.9 MG, CYCLIC (DAY 1,8,15,22)
     Route: 042
     Dates: start: 20120516
  3. ACETAMINOPHEN [Concomitant]
     Dosage: 1000 MG, 3X/DAY
     Route: 048
     Dates: start: 20120717
  4. ACYCLOVIR [Concomitant]
     Dosage: 400 MG, 2X/DAY
     Route: 048
     Dates: start: 20120516
  5. CETIRIZINE [Concomitant]
     Dosage: 10 MG, 1X/DAY (EVERY MORNING)
     Route: 048
     Dates: start: 20100709
  6. COLECALCIFEROL [Concomitant]
     Dosage: 1000 IU, 1X/DAY
     Route: 048
     Dates: start: 20120725
  7. CYANOCOBALAMIN [Concomitant]
     Dosage: 2500 MEQ, DAILY
     Route: 048
     Dates: start: 20100803
  8. DIPHENHYDRAMINE [Concomitant]
     Dosage: 25 MG, DAILY
     Route: 048
     Dates: start: 20110802, end: 20120909
  9. DOXYCYCLINE HYCLATE [Concomitant]
     Dosage: 100 MG, 2X/DAY
     Route: 048
     Dates: start: 20120905, end: 20120909
  10. FLUTICASONE [Concomitant]
     Dosage: 50 UG, UNK ONE SPRAY TO EACH NOSTRIL
     Route: 045
     Dates: start: 20071011
  11. HYDROCODONE W/ACETAMINOPHEN [Concomitant]
     Indication: PAIN
     Dosage: 1 DF (7.5-325), AS NEEDED EVERY 6 HOURS
     Route: 048
     Dates: start: 20120612
  12. METHADONE [Concomitant]
     Dosage: 5 MG, 3X/DAY (START WITH 1/2 TAB TWICE DAILY FOR 3 DAYS THEN 1 TAB TWICE DAILY)
     Route: 048
     Dates: start: 20120814
  13. FORMOTEROL FUMARATE/MOMETASONE FUROATE [Concomitant]
     Dosage: 2 DF (200-5), INHLAE TWO PUFFS 2X/DAY
     Route: 055
     Dates: start: 20120620
  14. OMEPRAZOLE [Concomitant]
     Dosage: 40 MG, DAILY
     Route: 048
     Dates: start: 20120717, end: 20120909
  15. ONDANSETRON [Concomitant]
     Indication: NAUSEA
     Dosage: 4 MG, EVERY 8 HOURS AS NEEDED
     Dates: start: 20120516
  16. PEG 3350 AND ELECTROLYTES FOR ORAL SOLUTION [Concomitant]
     Indication: CONSTIPATION
     Dosage: 17 G, PACKAGE DAILY AS NEEDED
     Dates: start: 20120509
  17. PROCHLORPERAZINE [Concomitant]
     Dosage: 10 MG EVERY 6 HOURS AS NEEDED
     Dates: start: 20120516
  18. TRAZODONE [Concomitant]
     Dosage: 50 MG, 1X/DAY AT BEDTIME
     Route: 048
     Dates: start: 20120717
  19. SULFAMOXOLE/TRIMETHOPRIM [Concomitant]
     Dosage: 1 DF (SULFAMETHOXAZOLE 800MG /TRIMETHOPRIM 160 MG) DAILY
     Dates: start: 20100909
  20. VENLAFAXINE HYDROCHLORIDE [Concomitant]
     Dosage: 37.5 MG, DAILY
     Dates: start: 20120727
  21. DOCUSATE SODIUM\SENNOSIDES [Concomitant]
     Dosage: 1 DF (8.6/50MG), 3X/DAY, TITRATE AS NEEDED
     Route: 048
     Dates: start: 20100125

REACTIONS (3)
  - Febrile neutropenia [Recovered/Resolved]
  - Pseudomonal bacteraemia [Recovered/Resolved]
  - Pseudomonal sepsis [Recovered/Resolved]
